FAERS Safety Report 14895831 (Version 1)
Quarter: 2018Q2

REPORT INFORMATION
  Report Type: Spontaneous
  Country: US (occurrence: US)
  Receive Date: 20180515
  Receipt Date: 20180515
  Transmission Date: 20180711
  Serious: No
  Sender: FDA-Public Use
  Company Number: US-MYLANLABS-2018M1020886

PATIENT
  Sex: Female
  Weight: 44 kg

DRUGS (1)
  1. FENTANYL TRANSDERMAL SYSTEM [Suspect]
     Active Substance: FENTANYL
     Indication: PAIN
     Dosage: 75 ?G, UNK (72 HRS)
     Route: 062
     Dates: start: 2006

REACTIONS (1)
  - Adrenal disorder [Not Recovered/Not Resolved]
